FAERS Safety Report 7298563-4 (Version None)
Quarter: 2011Q1

REPORT INFORMATION
  Report Type: 
  Country: None (occurrence: None)
  Receive Date: 20110214
  Receipt Date: 20110214
  Transmission Date: 20110831
  Serious: Yes (Hospitalization, Other)
  Sender: FDA-Public Use
  Company Number: None

PATIENT
  Sex: Male
  Weight: 68 kg

DRUGS (8)
  1. CARBIDOPA + LEVODOPA [Suspect]
     Indication: PARKINSON'S DISEASE
     Dosage: (195 MG ORAL)
     Dates: start: 20100802, end: 20101125
  2. BETALOC [Concomitant]
  3. FUROSEMIDE [Concomitant]
  4. CIPROFLOXACIN [Concomitant]
  5. THEOPHYLLINE [Concomitant]
  6. ATROVENT [Concomitant]
  7. CD-LD OR PLACEBO [Suspect]
     Indication: PARKINSON'S DISEASE
     Dosage: (25/100MG ORAL)
     Route: 048
     Dates: start: 20100712, end: 20101125
  8. KLACID [Concomitant]

REACTIONS (8)
  - NEUROLOGICAL EXAMINATION ABNORMAL [None]
  - RESPIRATORY FAILURE [None]
  - ATRIAL FIBRILLATION [None]
  - CONDITION AGGRAVATED [None]
  - MYOCARDIAL ISCHAEMIA [None]
  - AGITATION [None]
  - PNEUMONIA [None]
  - RASH [None]
